FAERS Safety Report 4395989-3 (Version None)
Quarter: 2004Q3

REPORT INFORMATION
  Report Type: 
  Country: None (occurrence: None)
  Receive Date: 20040713
  Receipt Date: 20040702
  Transmission Date: 20050211
  Serious: Yes (Hospitalization)
  Sender: FDA-Public Use
  Company Number: CH-BRISTOL-MYERS SQUIBB COMPANY-12634390

PATIENT
  Age: 51 Year
  Sex: Female

DRUGS (7)
  1. GLUCOPHAGE [Suspect]
     Indication: DIABETES MELLITUS NON-INSULIN-DEPENDENT
     Route: 048
     Dates: end: 20040620
  2. ACTRAPID HM [Interacting]
     Indication: DIABETES MELLITUS NON-INSULIN-DEPENDENT
     Dosage: DAILY DOSE:  4-2-4-0
     Route: 058
     Dates: end: 20040620
  3. ASPIRINA [Interacting]
     Indication: PROPHYLAXIS
     Route: 048
  4. HUMINSULIN LONG [Interacting]
     Indication: DIABETES MELLITUS NON-INSULIN-DEPENDENT
     Dosage: DAILY DOSE:  0-0-0-8
     Route: 058
     Dates: end: 20040620
  5. ANDREAFOL [Concomitant]
     Route: 048
  6. OLBETAM [Concomitant]
     Route: 048
  7. IRON [Concomitant]
     Route: 048

REACTIONS (3)
  - DISTURBANCE IN ATTENTION [None]
  - DRUG INTERACTION [None]
  - HYPOGLYCAEMIA [None]
